FAERS Safety Report 10051376 (Version 1)
Quarter: 2014Q2

REPORT INFORMATION
  Report Type: Spontaneous
  Country: DK (occurrence: FR)
  Receive Date: 20140401
  Receipt Date: 20140401
  Transmission Date: 20141212
  Serious: Yes (Other)
  Sender: FDA-Public Use
  Company Number: FR-FRI-1000066023

PATIENT
  Age: 23 Year
  Sex: Male

DRUGS (5)
  1. ESCITALOPRAM [Suspect]
     Dosage: 10 MG
     Route: 048
     Dates: start: 201303
  2. XEROQUEL [Suspect]
     Dosage: 50 MG
     Route: 048
     Dates: start: 201310, end: 201312
  3. XEROQUEL [Suspect]
     Dosage: 100 MG
     Route: 048
     Dates: start: 201312, end: 20140304
  4. XEROQUEL [Suspect]
     Dosage: 50 MG
     Route: 048
     Dates: start: 20140305
  5. DEPAMIDE [Concomitant]
     Dates: start: 201307, end: 20140106

REACTIONS (1)
  - Epilepsy [Recovering/Resolving]
